FAERS Safety Report 5780240-X (Version None)
Quarter: 2008Q2

REPORT INFORMATION
  Report Type: 
  Country: None (occurrence: None)
  Receive Date: 20080620
  Receipt Date: 20080612
  Transmission Date: 20081010
  Serious: Yes (Hospitalization)
  Sender: FDA-Public Use
  Company Number: PHEH2008US05344

PATIENT

DRUGS (1)
  1. EXELON [Suspect]

REACTIONS (1)
  - ENDOTRACHEAL INTUBATION [None]
